FAERS Safety Report 5186266-1 (Version None)
Quarter: 2006Q4

REPORT INFORMATION
  Report Type: 
  Country: None (occurrence: None)
  Receive Date: 20061213
  Receipt Date: 20061130
  Transmission Date: 20070319
  Serious: Yes (Other)
  Sender: FDA-Public Use
  Company Number: 2006SP003566

PATIENT
  Age: 63 Year
  Sex: Male
  Weight: 62 kg

DRUGS (8)
  1. PEG-INTRON [Suspect]
     Indication: HEPATITIS C
     Dosage: SEE IMAGE, SC
     Route: 058
     Dates: start: 20051209, end: 20060413
  2. PEG-INTRON [Suspect]
     Indication: HEPATITIS C
     Dosage: SEE IMAGE, SC
     Route: 058
     Dates: start: 20060420, end: 20061102
  3. REBETOL [Suspect]
     Indication: HEPATITIS C
     Dosage: SEE IMAGE, PO
     Route: 048
     Dates: start: 20051209, end: 20060119
  4. REBETOL [Suspect]
     Indication: HEPATITIS C
     Dosage: SEE IMAGE, PO
     Route: 048
     Dates: start: 20060120, end: 20060712
  5. REBETOL [Suspect]
     Indication: HEPATITIS C
     Dosage: SEE IMAGE, PO
     Route: 048
     Dates: start: 20060713, end: 20061102
  6. SERENAMIN [Concomitant]
  7. MACTASE [Concomitant]
  8. LENDORMIN [Concomitant]

REACTIONS (5)
  - ARTHRALGIA [None]
  - INJECTION SITE ULCER [None]
  - RASH [None]
  - SCAB [None]
  - SKIN TEST POSITIVE [None]
